FAERS Safety Report 5670582-0 (Version None)
Quarter: 2008Q1

REPORT INFORMATION
  Report Type: 
  Country: None (occurrence: None)
  Receive Date: 20080314
  Receipt Date: 20080314
  Transmission Date: 20080703
  Serious: Yes (Disabling)
  Sender: FDA-Public Use
  Company Number: None

PATIENT
  Age: 46 Year
  Sex: Female
  Weight: 65.318 kg

DRUGS (1)
  1. LAMICTAL [Suspect]
     Indication: BIPOLAR DISORDER
     Dosage: 25MG 3 TAB TWICE A DAY
     Dates: start: 20060801, end: 20071101

REACTIONS (3)
  - DYSPEPSIA [None]
  - GASTRITIS [None]
  - OESOPHAGITIS [None]
